FAERS Safety Report 9159325 (Version 5)
Quarter: 2013Q2

REPORT INFORMATION
  Report Type: Spontaneous
  Country: JP (occurrence: JP)
  Receive Date: 20130313
  Receipt Date: 20130424
  Transmission Date: 20140414
  Serious: Yes (Death, Other)
  Sender: FDA-Public Use
  Company Number: JP-JNJFOC-20130306349

PATIENT
  Age: 88 Year
  Sex: Female
  Weight: 40 kg

DRUGS (11)
  1. REMINYL [Suspect]
     Indication: DEMENTIA ALZHEIMER^S TYPE
     Route: 048
     Dates: start: 20130212, end: 20130221
  2. MEMANTINE HYDROCHLORIDE [Suspect]
     Indication: DEMENTIA ALZHEIMER^S TYPE
     Route: 048
     Dates: start: 20130203, end: 20130209
  3. MEMANTINE HYDROCHLORIDE [Suspect]
     Indication: DEMENTIA ALZHEIMER^S TYPE
     Route: 048
     Dates: start: 20130210, end: 20130216
  4. MEMANTINE HYDROCHLORIDE [Suspect]
     Indication: DEMENTIA ALZHEIMER^S TYPE
     Route: 048
     Dates: start: 20130217, end: 20130221
  5. MEMANTINE HYDROCHLORIDE [Suspect]
     Indication: DEMENTIA ALZHEIMER^S TYPE
     Route: 048
     Dates: start: 20130127, end: 20130202
  6. ROZEREM [Suspect]
     Indication: INSOMNIA
     Route: 048
     Dates: start: 20130212, end: 20130221
  7. SERENACE [Suspect]
     Indication: RESTLESSNESS
     Route: 048
     Dates: start: 20130212, end: 20130221
  8. CEROCRAL [Concomitant]
     Indication: CEREBRAL INFARCTION
     Dosage: 3 PER 1
     Route: 048
     Dates: start: 20130126, end: 20130221
  9. TAGAMET [Concomitant]
     Indication: GASTRITIS
     Route: 048
     Dates: start: 20130126, end: 20130221
  10. AMLODIN [Concomitant]
     Indication: HYPERTENSION
     Route: 048
     Dates: start: 20130126, end: 20130221
  11. STAYBLA [Concomitant]
     Indication: NOCTURIA
     Route: 048
     Dates: start: 20130126, end: 20130221

REACTIONS (6)
  - Respiratory failure [Fatal]
  - Altered state of consciousness [Fatal]
  - Blood pressure decreased [Not Recovered/Not Resolved]
  - Dysphagia [Not Recovered/Not Resolved]
  - Diarrhoea [Recovering/Resolving]
  - Dehydration [Recovering/Resolving]
